FAERS Safety Report 19306918 (Version 3)
Quarter: 2021Q3

REPORT INFORMATION
  Report Type: Report from Study
  Country: CA (occurrence: CA)
  Receive Date: 20210526
  Receipt Date: 20210806
  Transmission Date: 20211014
  Serious: Yes (Death, Life-Threatening)
  Sender: FDA-Public Use
  Company Number: PHHY2018CA011804

PATIENT
  Age: 69 Year
  Sex: Male

DRUGS (7)
  1. SANDOSTATIN LAR DEPOT [Suspect]
     Active Substance: OCTREOTIDE ACETATE
     Dosage: 60 MG, Q2W (EVERY 2 WEEKS)
     Route: 030
     Dates: start: 20171030
  2. SANDOSTATINE [Suspect]
     Active Substance: OCTREOTIDE ACETATE
     Dosage: 100 MCG/ML, TID
     Route: 058
  3. SANDOSTATINE [Suspect]
     Active Substance: OCTREOTIDE ACETATE
  4. SANDOSTATIN LAR DEPOT [Suspect]
     Active Substance: OCTREOTIDE ACETATE
     Dosage: 30 MG, Q2W (EVERY 2 WEEKS)
     Route: 030
  5. SANDOSTATINE [Suspect]
     Active Substance: OCTREOTIDE ACETATE
     Indication: CARCINOID TUMOUR
     Dosage: 100 MCG/ML, TEST DOSE
     Route: 058
     Dates: start: 20171013, end: 20171013
  6. SANDOSTATIN LAR DEPOT [Suspect]
     Active Substance: OCTREOTIDE ACETATE
     Indication: CARCINOID SYNDROME
     Dosage: 30 MG, (EVERY 3 WEEKS)
     Route: 030
     Dates: start: 20171030
  7. SANDOSTATIN LAR DEPOT [Suspect]
     Active Substance: OCTREOTIDE ACETATE
     Dosage: 30 MG, QMO (EVERY 4 WEEKS)
     Route: 030
     Dates: start: 20180705

REACTIONS (19)
  - Death [Fatal]
  - Injection site pain [Unknown]
  - Needle issue [Unknown]
  - Arthralgia [Unknown]
  - Ocular discomfort [Unknown]
  - Underdose [Unknown]
  - Jaundice [Unknown]
  - Body temperature decreased [Unknown]
  - Injection site bruising [Unknown]
  - Terminal state [Unknown]
  - Wound secretion [Unknown]
  - Blood bilirubin increased [Unknown]
  - Tooth abscess [Unknown]
  - Inappropriate schedule of product administration [Unknown]
  - Blood pressure diastolic decreased [Unknown]
  - Eye pain [Unknown]
  - Eye swelling [Unknown]
  - Drug ineffective [Unknown]
  - Blood pressure systolic increased [Unknown]

NARRATIVE: CASE EVENT DATE: 20171030
